FAERS Safety Report 13333012 (Version 7)
Quarter: 2017Q2

REPORT INFORMATION
  Report Type: Report from Study
  Country: US (occurrence: US)
  Receive Date: 20170313
  Receipt Date: 20170621
  Transmission Date: 20170830
  Serious: Yes (Hospitalization, Other)
  Sender: FDA-Public Use
  Company Number: US-BRISTOL-MYERS SQUIBB COMPANY-BMS-2017-014710

PATIENT
  Age: 75 Year
  Sex: Male

DRUGS (1)
  1. NIVOLUMAB [Suspect]
     Active Substance: NIVOLUMAB
     Indication: NON-SMALL CELL LUNG CANCER
     Dosage: UNK
     Route: 042

REACTIONS (13)
  - Drug ineffective [Unknown]
  - Neoplasm [Unknown]
  - Dyspnoea [Unknown]
  - Oropharyngeal pain [Unknown]
  - Central venous catheterisation [Unknown]
  - Device related infection [Recovered/Resolved]
  - Vertigo [Unknown]
  - Limb discomfort [Recovered/Resolved]
  - Rash [Recovered/Resolved]
  - Oral pain [Unknown]
  - Cardiac failure [Unknown]
  - Oropharyngeal pain [Recovered/Resolved]
  - Back pain [Unknown]

NARRATIVE: CASE EVENT DATE: 20170224
